FAERS Safety Report 17278779 (Version 2)
Quarter: 2020Q1

REPORT INFORMATION
  Report Type: Spontaneous
  Country: DE (occurrence: DE)
  Receive Date: 20200116
  Receipt Date: 20200131
  Transmission Date: 20200409
  Serious: Yes (Hospitalization, Other)
  Sender: FDA-Public Use
  Company Number: DE-ABBVIE-20K-062-3231515-00

PATIENT
  Age: 65 Year
  Sex: Female
  Weight: 63 kg

DRUGS (1)
  1. SKYRIZI [Suspect]
     Active Substance: RISANKIZUMAB-RZAA
     Indication: PSORIASIS
     Route: 058
     Dates: start: 20190712, end: 20191031

REACTIONS (7)
  - Coronary artery stenosis [Unknown]
  - Iliac artery disease [Unknown]
  - B-cell lymphoma [Unknown]
  - Aortic arteriosclerosis [Unknown]
  - Skin mass [Unknown]
  - Emphysema [Unknown]
  - Breast mass [Unknown]

NARRATIVE: CASE EVENT DATE: 201912
